FAERS Safety Report 23342888 (Version 1)
Quarter: 2023Q4

REPORT INFORMATION
  Report Type: Spontaneous
  Country: US (occurrence: None)
  Receive Date: 20231226
  Receipt Date: 20231226
  Transmission Date: 20240110
  Serious: No
  Sender: FDA-Public Use
  Company Number: None

PATIENT
  Age: 63 Year
  Sex: Male

DRUGS (3)
  1. OTREXUP [Suspect]
     Active Substance: METHOTREXATE
     Indication: Rheumatoid arthritis
     Dosage: OTHER FREQUENCY : WKLY SAME DAY;?
     Route: 058
     Dates: start: 202110
  2. OTREXUP [Suspect]
     Active Substance: METHOTREXATE
     Indication: Rheumatoid factor negative
  3. OTREXUP [Suspect]
     Active Substance: METHOTREXATE
     Indication: Arthritis

REACTIONS (2)
  - Neoplasm malignant [None]
  - Therapy interrupted [None]
